FAERS Safety Report 5454009-X (Version None)
Quarter: 2007Q3

REPORT INFORMATION
  Report Type: 
  Country: None (occurrence: None)
  Receive Date: 20070917
  Receipt Date: 20070709
  Transmission Date: 20080115
  Serious: Yes (Other)
  Sender: FDA-Public Use
  Company Number: US-ASTRAZENECA-2006UW06100

PATIENT
  Age: 302 Month
  Sex: Male

DRUGS (3)
  1. SEROQUEL [Suspect]
     Indication: SCHIZOPHRENIA
     Dosage: 25 MG TO 50 MG
     Route: 048
     Dates: start: 20010101, end: 20051001
  2. SEROQUEL [Suspect]
     Indication: SLEEP DISORDER
     Dosage: 25 MG TO 50 MG
     Route: 048
     Dates: start: 20010101, end: 20051001
  3. RISPERDAL [Suspect]
     Indication: SCHIZOPHRENIA
     Dates: start: 19980101, end: 20030101

REACTIONS (2)
  - DIABETES MELLITUS [None]
  - PANCREATITIS [None]
